FAERS Safety Report 9529807 (Version 2)
Quarter: 2013Q3

REPORT INFORMATION
  Report Type: Report from Study
  Country: US (occurrence: US)
  Receive Date: 20130917
  Receipt Date: 20130917
  Transmission Date: 20140515
  Serious: Yes (Life-Threatening, Hospitalization, Other)
  Sender: FDA-Public Use
  Company Number: US-ACTELION-A-US2013-82471

PATIENT
  Age: 80 Year
  Sex: Female

DRUGS (3)
  1. TRACLEER [Suspect]
     Indication: PULMONARY ARTERIAL HYPERTENSION
     Dosage: 62.5 MG, BID
     Route: 048
     Dates: start: 20100119
  2. COUMADIN [Concomitant]
  3. SILDENAFIL [Concomitant]

REACTIONS (6)
  - Cystitis [Unknown]
  - Cardiac failure congestive [Unknown]
  - Atrial fibrillation [Recovering/Resolving]
  - Bradycardia [Recovering/Resolving]
  - Ventricular arrhythmia [Recovering/Resolving]
  - Cardiac pacemaker insertion [Unknown]
